FAERS Safety Report 16012088 (Version 1)
Quarter: 2019Q1

REPORT INFORMATION
  Report Type: Spontaneous
  Country: US (occurrence: US)
  Receive Date: 20190227
  Receipt Date: 20190227
  Transmission Date: 20190418
  Serious: Yes (Hospitalization)
  Sender: FDA-Public Use
  Company Number: US-NAPPMUNDI-USA-2019-0145648

PATIENT
  Sex: Female

DRUGS (2)
  1. BETADINE [Suspect]
     Active Substance: POVIDONE-IODINE
     Dosage: UNK
     Route: 061
  2. BETADINE [Suspect]
     Active Substance: POVIDONE-IODINE
     Indication: WOUND
     Route: 061

REACTIONS (5)
  - Wound [Recovering/Resolving]
  - Pruritus [Unknown]
  - Asthenia [Not Recovered/Not Resolved]
  - Bacterial infection [Unknown]
  - Product container issue [Unknown]

NARRATIVE: CASE EVENT DATE: 20181221
